FAERS Safety Report 4581559-0 (Version None)
Quarter: 2005Q1

REPORT INFORMATION
  Report Type: 
  Country: None (occurrence: None)
  Receive Date: 20050214
  Receipt Date: 20041117
  Transmission Date: 20050727
  Serious: No
  Sender: FDA-Public Use
  Company Number: US-GLAXOSMITHKLINE-A0534329A

PATIENT
  Age: 48 Year
  Sex: Female

DRUGS (11)
  1. LAMICTAL [Suspect]
     Indication: BIPOLAR DISORDER
     Dosage: 200MG PER DAY
     Route: 048
     Dates: start: 20040501, end: 20041117
  2. PROZAC [Concomitant]
  3. CELEBREX [Concomitant]
  4. SEROQUEL [Concomitant]
  5. NORCO [Concomitant]
  6. TIZANIDINE HCL [Concomitant]
  7. NEURONTIN [Concomitant]
  8. UNKNOWN MEDICATION [Concomitant]
  9. XANAX [Concomitant]
  10. PREVACID [Concomitant]
  11. LIDOCAINE [Concomitant]

REACTIONS (2)
  - RASH [None]
  - RASH PRURITIC [None]
